FAERS Safety Report 8093186-1 (Version None)
Quarter: 2012Q1

REPORT INFORMATION
  Report Type: 
  Country: None (occurrence: None)
  Receive Date: 20120131
  Receipt Date: 20120126
  Transmission Date: 20120608
  Serious: Yes (Hospitalization)
  Sender: FDA-Public Use
  Company Number: US-ELI_LILLY_AND_COMPANY-US201112001300

PATIENT
  Sex: Female

DRUGS (2)
  1. VERAPAMIL [Concomitant]
     Dosage: UNK
  2. HUMULIN 70/30 [Suspect]
     Indication: TYPE 1 DIABETES MELLITUS
     Dosage: 60 U, TID
     Dates: start: 20070101

REACTIONS (7)
  - CHRONIC OBSTRUCTIVE PULMONARY DISEASE [None]
  - FEELING HOT [None]
  - CORONARY ARTERY DISEASE [None]
  - FEELING ABNORMAL [None]
  - PRODUCT TAMPERING [None]
  - TREMOR [None]
  - BLOOD PRESSURE INCREASED [None]
